FAERS Safety Report 8412614-2 (Version None)
Quarter: 2012Q2

REPORT INFORMATION
  Report Type: 
  Country: None (occurrence: None)
  Receive Date: 20120605
  Receipt Date: 20120522
  Transmission Date: 20120825
  Serious: No
  Sender: FDA-Public Use
  Company Number: US-AMGEN-USASP2012015697

PATIENT
  Age: 61 Year
  Sex: Male

DRUGS (3)
  1. ENBREL [Suspect]
     Indication: RHEUMATOID ARTHRITIS
     Dosage: 50 MG, QWK
     Dates: start: 20120130
  2. CELEBREX [Concomitant]
     Dosage: UNK
  3. FENTANYL [Concomitant]

REACTIONS (10)
  - PRURITUS [None]
  - COUGH [None]
  - INCREASED UPPER AIRWAY SECRETION [None]
  - RHEUMATOID ARTHRITIS [None]
  - NASOPHARYNGITIS [None]
  - RASH ERYTHEMATOUS [None]
  - NAUSEA [None]
  - FISTULA [None]
  - OROPHARYNGEAL PAIN [None]
  - SOMNOLENCE [None]
